FAERS Safety Report 8021014-9 (Version None)
Quarter: 2011Q4

REPORT INFORMATION
  Report Type: 
  Country: None (occurrence: None)
  Receive Date: 20111229
  Receipt Date: 20111214
  Transmission Date: 20120403
  Serious: Yes (Hospitalization)
  Sender: FDA-Public Use
  Company Number: TPA2011A08694

PATIENT
  Age: 55 Year
  Sex: Male

DRUGS (6)
  1. COLCHICINE [Concomitant]
  2. SODIUM BICARBONATE IN PLASTIC CONTAINER [Concomitant]
  3. CARVEDILOL [Concomitant]
  4. ULORIC [Suspect]
     Indication: GOUTY ARTHRITIS
     Dosage: (80 MG)
     Route: 048
     Dates: start: 20110531, end: 20110822
  5. ZOLPIDEM [Concomitant]
  6. AMLODIPINE [Concomitant]

REACTIONS (1)
  - DUODENAL ULCER [None]
